FAERS Safety Report 9282774 (Version 1)
Quarter: 2013Q2

REPORT INFORMATION
  Report Type: Report from Study
  Country: US (occurrence: US)
  Receive Date: 20130510
  Receipt Date: 20130510
  Transmission Date: 20140414
  Serious: No
  Sender: FDA-Public Use
  Company Number: PHEH2013US004053

PATIENT
  Sex: Female

DRUGS (6)
  1. TASIGNA [Suspect]
     Indication: CHRONIC MYELOID LEUKAEMIA
     Dosage: 150 MG, BID
     Route: 048
     Dates: start: 20120626
  2. DOXYCYCLINE [Concomitant]
     Dosage: 100 MG, UNK
  3. ALBUTEROL [Concomitant]
     Dosage: 108 UG, UNK
  4. ENALAPRIL [Concomitant]
     Dosage: 2.5 MG, DAILY
     Route: 048
  5. FLAVURIL [Concomitant]
  6. COMPAZINE [Concomitant]
     Dosage: 10 MG, Q6H

REACTIONS (2)
  - Alopecia [Unknown]
  - Nasopharyngitis [Unknown]
